FAERS Safety Report 8061884-1 (Version None)
Quarter: 2012Q1

REPORT INFORMATION
  Report Type: 
  Country: None (occurrence: None)
  Receive Date: 20120123
  Receipt Date: 20120110
  Transmission Date: 20120608
  Serious: Yes (Death, Life-Threatening, Hospitalization, Other)
  Sender: FDA-Public Use
  Company Number: US-ELI_LILLY_AND_COMPANY-US201111005036

PATIENT
  Sex: Female
  Weight: 74.8 kg

DRUGS (24)
  1. CLARITIN [Concomitant]
     Dosage: UNK, EACH MORNING
     Route: 048
     Dates: start: 20071101
  2. GLUCOPHAGE [Concomitant]
     Dosage: UNK, EACH MORNING
     Dates: start: 20090701
  3. FERROUS SULFATE TAB [Concomitant]
     Dosage: 750 MG, MONTHLY (1/M)
     Dates: start: 20111107
  4. OMEPRAZOLE [Concomitant]
     Dosage: 10 MG, UNK
  5. ADVAIR DISKUS 100/50 [Concomitant]
     Dosage: UNK, BID
  6. BYETTA [Concomitant]
     Dosage: 10 UG, BID
     Dates: start: 20110330
  7. LORATADINE [Concomitant]
     Dosage: 10 MG, UNK
  8. CELEXA [Concomitant]
     Dosage: 10 MG, QD
     Route: 048
  9. PERCOCET [Concomitant]
     Dosage: UNK, BID
     Dates: start: 20111026
  10. VALTREX [Concomitant]
     Dosage: 500 MG, PRN
     Dates: start: 20110217
  11. PANTOPRAZOLE SODIUM [Concomitant]
     Dosage: UNK, QD
     Route: 048
  12. BACLOFEN [Concomitant]
     Dosage: 20 MG, BID
     Dates: start: 20111026
  13. CELEXA [Concomitant]
     Dosage: 20 MG, QD
     Route: 048
     Dates: start: 20071101
  14. TEGRETOL [Concomitant]
     Dosage: 200 MG, TID
     Dates: start: 20110830
  15. WARFARIN SODIUM [Concomitant]
     Dosage: UNK
     Dates: start: 20110617
  16. FORTEO [Suspect]
     Indication: OSTEOPOROSIS
     Dosage: 20 UG, QD
     Route: 058
  17. AGGRENOX [Concomitant]
     Dosage: UNK, BID
     Dates: start: 20071227
  18. COPAXONE [Concomitant]
     Dosage: 20 UG, QD
     Route: 058
     Dates: start: 20071101
  19. METFORMIN [Concomitant]
     Dosage: 750 MG, UNK
  20. TEGRETOL [Concomitant]
     Dosage: 200 MG, TID
     Dates: start: 20111026
  21. COLACE [Concomitant]
     Dosage: UNK, BID
     Route: 048
  22. BENICAR [Concomitant]
     Dosage: UNK
     Route: 048
     Dates: start: 20100106
  23. METOPROLOL TARTRATE [Concomitant]
     Dosage: 25 MG, BID
     Route: 048
     Dates: start: 20090612
  24. NYSTATIN [Concomitant]
     Dosage: UNK, PRN
     Route: 061
     Dates: start: 20110901

REACTIONS (16)
  - GRAND MAL CONVULSION [None]
  - ANAEMIA [None]
  - RENAL INJURY [None]
  - ACUTE RESPIRATORY FAILURE [None]
  - ENCEPHALOPATHY [None]
  - COAGULOPATHY [None]
  - ELECTROLYTE IMBALANCE [None]
  - MULTI-ORGAN FAILURE [None]
  - CONFUSIONAL STATE [None]
  - GENERALISED OEDEMA [None]
  - COMA [None]
  - STATUS EPILEPTICUS [None]
  - HUMERUS FRACTURE [None]
  - STENOTROPHOMONAS INFECTION [None]
  - SEPSIS [None]
  - HYPERGLYCAEMIA [None]
